FAERS Safety Report 12282736 (Version 1)
Quarter: 2016Q2

REPORT INFORMATION
  Report Type: Spontaneous
  Country: JP (occurrence: JP)
  Receive Date: 20160419
  Receipt Date: 20160419
  Transmission Date: 20160815
  Serious: Yes (Hospitalization)
  Sender: FDA-Public Use
  Company Number: JP-PFIZER INC-2016210935

PATIENT
  Age: 63 Year
  Sex: Female
  Weight: 43 kg

DRUGS (10)
  1. ELDECALCITOL [Suspect]
     Active Substance: ELDECALCITOL
  2. ATORVASTATIN [Concomitant]
     Active Substance: ATORVASTATIN
  3. LYRICA [Suspect]
     Active Substance: PREGABALIN
     Route: 048
  4. ASPIRIN. [Concomitant]
     Active Substance: ASPIRIN
  5. PREDNISOLONE. [Concomitant]
     Active Substance: PREDNISOLONE
  6. ATENOLOL. [Concomitant]
     Active Substance: ATENOLOL
  7. OMEPRAZOLE. [Concomitant]
     Active Substance: OMEPRAZOLE
  8. TERIPARATIDE [Suspect]
     Active Substance: TERIPARATIDE
  9. EZETIMIBE. [Concomitant]
     Active Substance: EZETIMIBE
  10. TOCILIZUMAB [Suspect]
     Active Substance: TOCILIZUMAB

REACTIONS (1)
  - Hepatitis E [Recovering/Resolving]
